FAERS Safety Report 17483206 (Version 1)
Quarter: 2020Q1

REPORT INFORMATION
  Report Type: Spontaneous
  Country: US (occurrence: US)
  Receive Date: 20200302
  Receipt Date: 20200302
  Transmission Date: 20200409
  Serious: Yes (Other)
  Sender: FDA-Public Use
  Company Number: US-PFIZER INC-2020087405

PATIENT
  Age: 73 Year
  Sex: Male

DRUGS (9)
  1. VENETOCLAX. [Suspect]
     Active Substance: VENETOCLAX
     Indication: T-CELL PROLYMPHOCYTIC LEUKAEMIA
     Dosage: 100 MG, DAILY, CYCLIC,ON DAY 1-3,(ONE CYCLE WAS CONSIDERED 4 WEEKS.)
  2. ALEMTUZUMAB [Concomitant]
     Active Substance: ALEMTUZUMAB
     Indication: T-CELL PROLYMPHOCYTIC LEUKAEMIA
     Dosage: 300 MG, CYCLIC,(3 TIMES A WEEK FOR TOTAL 6 WEEKS)
     Route: 042
  3. ALEMTUZUMAB [Concomitant]
     Active Substance: ALEMTUZUMAB
     Dosage: 300 MG, CYCLIC,(3 TIMES A WEEK WITH CLADRIBINE)
     Route: 042
  4. VENETOCLAX. [Suspect]
     Active Substance: VENETOCLAX
     Dosage: 200 MG, DAILY, CYCLIC,ON DAY 4-6(ONE CYCLE WAS CONSIDERED 4 WEEKS.)
  5. ALEMTUZUMAB [Concomitant]
     Active Substance: ALEMTUZUMAB
     Dosage: UNK (RETREATED), CYCLIC
     Route: 042
     Dates: start: 201711
  6. PENTOSTATIN. [Suspect]
     Active Substance: PENTOSTATIN
     Indication: T-CELL PROLYMPHOCYTIC LEUKAEMIA
     Dosage: 4 MG/M2, WEEKLY, (CYCLIC)
  7. CLADRIBINE. [Concomitant]
     Active Substance: CLADRIBINE
     Indication: SALVAGE THERAPY
     Dosage: 5 MG/M2, CYCLIC
     Route: 042
  8. VENETOCLAX. [Suspect]
     Active Substance: VENETOCLAX
     Dosage: 400 MG, DAILYCYCLIC,ON DAY 7 ONWARD (ONE CYCLE WAS CONSIDERED 4 WEEKS.)
  9. CLADRIBINE. [Concomitant]
     Active Substance: CLADRIBINE
     Indication: T-CELL PROLYMPHOCYTIC LEUKAEMIA

REACTIONS (7)
  - Nephritis [Recovered/Resolved]
  - BK virus infection [Recovered/Resolved]
  - Product use in unapproved indication [Unknown]
  - Off label use [Unknown]
  - Neutropenia [Recovered/Resolved]
  - Adenovirus infection [Recovered/Resolved]
  - Bone marrow failure [Recovered/Resolved]
